FAERS Safety Report 10844772 (Version 1)
Quarter: 2015Q1

REPORT INFORMATION
  Report Type: Spontaneous
  Country: US (occurrence: US)
  Receive Date: 20150220
  Receipt Date: 20150220
  Transmission Date: 20150721
  Serious: No
  Sender: FDA-Public Use
  Company Number: US-BAYER-2015-025118

PATIENT
  Age: 56 Year
  Sex: Female

DRUGS (1)
  1. CLIMARA [Suspect]
     Active Substance: ESTRADIOL
     Dosage: 0.075 MG/D, OW
     Route: 062
     Dates: start: 201406

REACTIONS (1)
  - Drug ineffective [None]
